FAERS Safety Report 10086703 (Version 1)
Quarter: 2014Q2

REPORT INFORMATION
  Report Type: Spontaneous
  Country: ES (occurrence: ES)
  Receive Date: 20140418
  Receipt Date: 20140418
  Transmission Date: 20141212
  Serious: Yes (Hospitalization)
  Sender: FDA-Public Use
  Company Number: ES-ELI_LILLY_AND_COMPANY-ES201404001956

PATIENT
  Age: 78 Year
  Sex: Male

DRUGS (5)
  1. ALIMTA [Suspect]
     Indication: ADENOSQUAMOUS CELL LUNG CANCER STAGE III
     Dosage: 500 MG, UNK
     Route: 042
     Dates: start: 20130626, end: 20130626
  2. CISPLATIN [Interacting]
     Indication: ADENOSQUAMOUS CELL LUNG CANCER STAGE III
     Dosage: UNK
     Route: 065
     Dates: start: 201304, end: 20130626
  3. ENALAPRIL [Concomitant]
     Indication: HYPERTENSION
     Dosage: 5 MG, QD
     Route: 065
     Dates: start: 20130430
  4. HIBOR [Concomitant]
     Indication: PULMONARY EMBOLISM
     Dosage: 10 KIU, QD
     Route: 065
     Dates: start: 20130430
  5. SERETIDE [Concomitant]
     Indication: BRONCHOSPASM
     Dosage: 2 X (25UG/50UG; DF), BID
     Route: 065
     Dates: start: 20130430

REACTIONS (4)
  - Hypomagnesaemia [Recovered/Resolved]
  - Renal failure acute [Recovering/Resolving]
  - Renal cyst [Unknown]
  - Drug interaction [Unknown]
